FAERS Safety Report 5667976-6 (Version None)
Quarter: 2008Q1

REPORT INFORMATION
  Report Type: 
  Country: None (occurrence: None)
  Receive Date: 20080315
  Receipt Date: 20080212
  Transmission Date: 20080703
  Serious: No
  Sender: FDA-Public Use
  Company Number: US-ABBOTT-08P-163-0438238-00

PATIENT
  Sex: Female
  Weight: 132 kg

DRUGS (4)
  1. HUMIRA [Suspect]
     Indication: CROHN'S DISEASE
     Route: 058
     Dates: start: 20070501
  2. MESALAMINE [Concomitant]
     Indication: CROHN'S DISEASE
  3. BUDESONIDE [Concomitant]
     Indication: CROHN'S DISEASE
  4. ZOLPIDEM TARTRATE [Concomitant]
     Indication: CROHN'S DISEASE

REACTIONS (8)
  - BACK PAIN [None]
  - COUGH [None]
  - EAR DISCOMFORT [None]
  - HEADACHE [None]
  - INJECTION SITE BRUISING [None]
  - INJECTION SITE DRYNESS [None]
  - NEPHROLITHIASIS [None]
  - SINUSITIS [None]
